FAERS Safety Report 7285885-6 (Version None)
Quarter: 2011Q1

REPORT INFORMATION
  Report Type: 
  Country: None (occurrence: None)
  Receive Date: 20110128
  Receipt Date: 20110118
  Transmission Date: 20110831
  Serious: Yes (Life-Threatening, Hospitalization)
  Sender: FDA-Public Use
  Company Number: DKLU1067690

PATIENT
  Age: 17 Year
  Sex: Female

DRUGS (5)
  1. ETOPOSIDE [Suspect]
     Indication: GESTATIONAL TROPHOBLASTIC TUMOUR
  2. VINCRISTINE [Suspect]
     Indication: GESTATIONAL TROPHOBLASTIC TUMOUR
  3. CYCLOPHOSPHAMIDE [Suspect]
     Indication: GESTATIONAL TROPHOBLASTIC TUMOUR
  4. COSMEGEN (DACTINOMYCIN) [Suspect]
     Indication: GESTATIONAL TROPHOBLASTIC TUMOUR
  5. METHOTREXATE [Suspect]
     Indication: GESTATIONAL TROPHOBLASTIC TUMOUR

REACTIONS (16)
  - CARDIAC FAILURE CONGESTIVE [None]
  - NAUSEA [None]
  - BLOOD PHOSPHORUS INCREASED [None]
  - DEEP VEIN THROMBOSIS [None]
  - PULMONARY OEDEMA [None]
  - TUMOUR LYSIS SYNDROME [None]
  - FUNGAEMIA [None]
  - VOMITING [None]
  - RENAL FAILURE ACUTE [None]
  - HYPOVOLAEMIA [None]
  - UPPER GASTROINTESTINAL HAEMORRHAGE [None]
  - DEHYDRATION [None]
  - BLOOD LACTATE DEHYDROGENASE INCREASED [None]
  - BLOOD POTASSIUM INCREASED [None]
  - OESOPHAGITIS [None]
  - BLOOD URIC ACID INCREASED [None]
